FAERS Safety Report 7384506-1 (Version None)
Quarter: 2011Q1

REPORT INFORMATION
  Report Type: 
  Country: None (occurrence: None)
  Receive Date: 20110330
  Receipt Date: 20101104
  Transmission Date: 20110831
  Serious: Yes (Life-Threatening)
  Sender: FDA-Public Use
  Company Number: JP-ABBOTT-10P-087-0683502-00

PATIENT
  Sex: Female
  Weight: 2.12 kg

DRUGS (3)
  1. ULTIVA [Suspect]
     Indication: DRUG EXPOSURE DURING PREGNANCY
     Route: 064
  2. NITROGLYCERIN [Suspect]
     Indication: DRUG EXPOSURE DURING PREGNANCY
     Route: 064
  3. SEVOFLURANE [Suspect]
     Indication: DRUG EXPOSURE DURING PREGNANCY
     Route: 064

REACTIONS (3)
  - DRUG EXPOSURE DURING PREGNANCY [None]
  - PREMATURE BABY [None]
  - FOETAL HEART RATE DECREASED [None]
